FAERS Safety Report 13949231 (Version 1)
Quarter: 2017Q3

REPORT INFORMATION
  Report Type: Spontaneous
  Country: US (occurrence: US)
  Receive Date: 20170908
  Receipt Date: 20170908
  Transmission Date: 20171128
  Serious: No
  Sender: FDA-Public Use
  Company Number: US-JAZZ-2017-US-008894

PATIENT
  Sex: Female

DRUGS (35)
  1. DIPHENHYDRAMINE. [Concomitant]
     Active Substance: DIPHENHYDRAMINE
  2. MAGNESIUM OXIDE. [Concomitant]
     Active Substance: MAGNESIUM OXIDE
  3. POTASSIUM CHLORIDE. [Concomitant]
     Active Substance: POTASSIUM CHLORIDE
  4. PULMICORT TURBUHALER [Concomitant]
     Active Substance: BUDESONIDE
  5. ALDACTONE [Concomitant]
     Active Substance: SPIRONOLACTONE
  6. BENAZEPRIL HCL [Concomitant]
     Active Substance: BENAZEPRIL HYDROCHLORIDE
  7. DICLOFENAC POTASSIUM. [Concomitant]
     Active Substance: DICLOFENAC POTASSIUM
  8. BUDESONIDE. [Concomitant]
     Active Substance: BUDESONIDE
  9. THEOPHYLLINE [Concomitant]
     Active Substance: THEOPHYLLINE ANHYDROUS
  10. LORATADINE. [Concomitant]
     Active Substance: LORATADINE
  11. PREDNISONE. [Concomitant]
     Active Substance: PREDNISONE
  12. AMLODIPINE BENAZEPRIL [Concomitant]
     Active Substance: AMLODIPINE BESYLATE\BENAZEPRIL HYDROCHLORIDE
  13. PRAVASTATIN SODIUM. [Concomitant]
     Active Substance: PRAVASTATIN SODIUM
  14. XANAX [Concomitant]
     Active Substance: ALPRAZOLAM
  15. COMBIVENT [Concomitant]
     Active Substance: ALBUTEROL SULFATE\IPRATROPIUM BROMIDE
  16. XYREM [Suspect]
     Active Substance: SODIUM OXYBATE
     Dosage: 4.5G, BID
     Route: 048
     Dates: start: 200803
  17. PROVIGIL [Concomitant]
     Active Substance: MODAFINIL
  18. TUDORZA PRESSAIR [Concomitant]
     Active Substance: ACLIDINIUM BROMIDE
  19. CEFPROZIL. [Concomitant]
     Active Substance: CEFPROZIL
  20. IPRATROPIUM [Concomitant]
     Active Substance: IPRATROPIUM
  21. HYDROCHLOROTHIAZIDE. [Concomitant]
     Active Substance: HYDROCHLOROTHIAZIDE
  22. ATENOLOL. [Concomitant]
     Active Substance: ATENOLOL
  23. CEFUROXIME AXETIL. [Concomitant]
     Active Substance: CEFUROXIME AXETIL
  24. XYREM [Suspect]
     Active Substance: SODIUM OXYBATE
     Indication: NARCOLEPSY
     Dosage: 2.25G, BID
     Route: 048
     Dates: start: 200603, end: 200604
  25. XYREM [Suspect]
     Active Substance: SODIUM OXYBATE
     Indication: CATAPLEXY
     Dosage: DOSE ADJUSTMENT
     Route: 048
     Dates: start: 200604, end: 200803
  26. PROAIR HFA [Concomitant]
     Active Substance: ALBUTEROL SULFATE
  27. BROVANA [Concomitant]
     Active Substance: ARFORMOTEROL TARTRATE
  28. SINGULAIR [Concomitant]
     Active Substance: MONTELUKAST SODIUM
  29. ZOLOFT [Concomitant]
     Active Substance: SERTRALINE HYDROCHLORIDE
  30. SPIRIVA [Concomitant]
     Active Substance: TIOTROPIUM BROMIDE MONOHYDRATE
  31. PERFOROMIST [Concomitant]
     Active Substance: FORMOTEROL FUMARATE DIHYDRATE
  32. BENZONATATE. [Concomitant]
     Active Substance: BENZONATATE
  33. LEXAPRO [Concomitant]
     Active Substance: ESCITALOPRAM OXALATE
  34. NIFEDIPINE. [Concomitant]
     Active Substance: NIFEDIPINE
  35. SYMBICORT [Concomitant]
     Active Substance: BUDESONIDE\FORMOTEROL FUMARATE DIHYDRATE

REACTIONS (1)
  - Dry mouth [Not Recovered/Not Resolved]
